FAERS Safety Report 9385662 (Version 2)
Quarter: 2013Q3

REPORT INFORMATION
  Report Type: Spontaneous
  Country: JP (occurrence: JP)
  Receive Date: 20130705
  Receipt Date: 20130716
  Transmission Date: 20140515
  Serious: Yes (Other)
  Sender: FDA-Public Use
  Company Number: JP-GLAXOSMITHKLINE-B0904678A

PATIENT
  Age: 61 Year
  Sex: Female

DRUGS (1)
  1. VALTREX [Suspect]
     Indication: ORAL HERPES
     Dosage: 500MG TWICE PER DAY
     Route: 048
     Dates: start: 20130621, end: 20130625

REACTIONS (4)
  - Abdominal discomfort [Unknown]
  - Trigeminal neuralgia [Unknown]
  - Ophthalmic herpes zoster [Unknown]
  - Abdominal pain [Recovered/Resolved]
